FAERS Safety Report 11513147 (Version 1)
Quarter: 2015Q3

REPORT INFORMATION
  Report Type: Spontaneous
  Country: US (occurrence: US)
  Receive Date: 20150903
  Receipt Date: 20150903
  Transmission Date: 20151125
  Serious: Yes (Other)
  Sender: FDA-Public Use
  Company Number: US-ELI_LILLY_AND_COMPANY-US201210002596

PATIENT
  Age: 66 Year
  Sex: Male

DRUGS (7)
  1. CYMBALTA [Suspect]
     Active Substance: DULOXETINE HYDROCHLORIDE
     Indication: DEPRESSION
     Dosage: 30MG, UNK
     Dates: start: 2006
  2. CYMBALTA [Suspect]
     Active Substance: DULOXETINE HYDROCHLORIDE
     Dosage: 60MG, UNK
  3. VITAMIN B12 [Concomitant]
     Active Substance: CYANOCOBALAMIN
  4. FOCALIN [Concomitant]
     Active Substance: DEXMETHYLPHENIDATE HYDROCHLORIDE
     Dosage: UNK
  5. FISH OIL [Concomitant]
     Active Substance: FISH OIL
  6. KLONOPIN [Concomitant]
     Active Substance: CLONAZEPAM
  7. ASPIRIN. [Concomitant]
     Active Substance: ASPIRIN

REACTIONS (10)
  - Abnormal dreams [Not Recovered/Not Resolved]
  - Disturbance in attention [Recovered/Resolved]
  - Nightmare [Not Recovered/Not Resolved]
  - Depressed mood [Recovering/Resolving]
  - Sleep disorder [Not Recovered/Not Resolved]
  - Dyskinesia [Recovering/Resolving]
  - Psychomotor hyperactivity [Unknown]
  - Dysthymic disorder [Unknown]
  - Suicidal ideation [Not Recovered/Not Resolved]
  - Anxiety [Recovering/Resolving]

NARRATIVE: CASE EVENT DATE: 2007
